FAERS Safety Report 23795274 (Version 3)
Quarter: 2024Q2

REPORT INFORMATION
  Report Type: Spontaneous
  Country: ZA (occurrence: ZA)
  Receive Date: 20240429
  Receipt Date: 20240611
  Transmission Date: 20240716
  Serious: Yes (Hospitalization)
  Sender: FDA-Public Use
  Company Number: ZA-AMERICAN REGENT INC-2024001570

PATIENT
  Sex: Female

DRUGS (3)
  1. VENOFER [Suspect]
     Active Substance: IRON SUCROSE
     Indication: Iron deficiency anaemia
     Dosage: UNK; FIRST ROUND
     Route: 042
     Dates: start: 202210
  2. VENOFER [Suspect]
     Active Substance: IRON SUCROSE
     Dosage: 400 MG AT 13:30
     Dates: start: 20240219, end: 20240219
  3. VENOFER [Suspect]
     Active Substance: IRON SUCROSE
     Dosage: 400 MG (SUBSEQUENT DOSE)
     Dates: start: 20240226, end: 20240226

REACTIONS (3)
  - Blood iron decreased [Not Recovered/Not Resolved]
  - Infection [Recovering/Resolving]
  - Drug ineffective [Unknown]

NARRATIVE: CASE EVENT DATE: 20240101
